FAERS Safety Report 8117387-9 (Version None)
Quarter: 2012Q1

REPORT INFORMATION
  Report Type: 
  Country: None (occurrence: None)
  Receive Date: 20120206
  Receipt Date: 20120126
  Transmission Date: 20120608
  Serious: Yes (Hospitalization)
  Sender: FDA-Public Use
  Company Number: US-ASTRAZENECA-2012SE05737

PATIENT
  Sex: Female
  Weight: 102.1 kg

DRUGS (7)
  1. SEROQUEL [Suspect]
     Route: 048
     Dates: start: 20111201
  2. SEROQUEL [Suspect]
     Indication: BIPOLAR DISORDER
     Route: 048
  3. INVEGA [Concomitant]
  4. LAMICTAL [Concomitant]
  5. LAMICTAL [Concomitant]
     Dates: start: 20111201
  6. SEROQUEL [Suspect]
     Route: 048
  7. INVEGA [Concomitant]
     Dates: start: 20111201

REACTIONS (5)
  - INSOMNIA [None]
  - DISTURBANCE IN ATTENTION [None]
  - STRESS [None]
  - AGITATION [None]
  - LOSS OF EMPLOYMENT [None]
